FAERS Safety Report 4947435-6 (Version None)
Quarter: 2006Q1

REPORT INFORMATION
  Report Type: 
  Country: None (occurrence: None)
  Receive Date: 20060317
  Receipt Date: 20060210
  Transmission Date: 20060701
  Serious: Yes (Death, Hospitalization, Other)
  Sender: FDA-Public Use
  Company Number: US-MERCK-0602USA03445

PATIENT
  Age: 77 Year
  Sex: Female
  Weight: 74 kg

DRUGS (27)
  1. VIOXX [Suspect]
     Indication: ARTHRITIS
     Route: 048
     Dates: start: 20000713, end: 20021013
  2. FUROSEMIDE [Concomitant]
     Route: 065
  3. PROPOXYPHENE HYDROCHLORIDE [Concomitant]
     Route: 065
  4. QUINIDINE [Concomitant]
     Route: 065
  5. PRILOSEC [Concomitant]
     Route: 065
  6. DILANTIN [Concomitant]
     Route: 065
  7. REZULIN [Concomitant]
     Route: 065
  8. K-DUR 10 [Concomitant]
     Route: 065
  9. LANOXIN [Concomitant]
     Route: 065
  10. NITRO-DUR [Concomitant]
     Route: 065
  11. NORVASC [Concomitant]
     Route: 065
  12. PLAVIX [Concomitant]
     Route: 065
     Dates: start: 20000920, end: 20040203
  13. MINITRAN [Concomitant]
     Route: 065
     Dates: start: 20000920, end: 20020501
  14. LEVAQUIN [Concomitant]
     Route: 065
  15. AMIBID LA [Concomitant]
     Route: 065
  16. AEROBID [Concomitant]
     Route: 065
  17. BACLOFEN [Concomitant]
     Route: 065
  18. ATIVAN [Concomitant]
     Route: 065
  19. AVANDIA [Concomitant]
     Route: 065
  20. DIFLUCAN [Concomitant]
     Route: 065
  21. SULFAMETHOXAZOLE [Concomitant]
     Route: 065
  22. LOTREL [Concomitant]
     Route: 065
  23. DIFIL G [Concomitant]
     Route: 065
  24. FLUOROMETHOLONE [Concomitant]
     Route: 065
  25. HUMULIN [Concomitant]
     Route: 065
  26. METOPROLOL [Concomitant]
     Route: 065
  27. IPRATROPIUM BROMIDE [Concomitant]
     Route: 065
     Dates: start: 20000121, end: 20010801

REACTIONS (5)
  - CEREBROVASCULAR ACCIDENT [None]
  - DEATH [None]
  - ISCHAEMIC STROKE [None]
  - MYOCARDIAL INFARCTION [None]
  - PNEUMONIA [None]
